FAERS Safety Report 6956932-3 (Version None)
Quarter: 2010Q3

REPORT INFORMATION
  Report Type: 
  Country: None (occurrence: None)
  Receive Date: 20100826
  Receipt Date: 20100817
  Transmission Date: 20110219
  Serious: Yes (Hospitalization)
  Sender: FDA-Public Use
  Company Number: UTC-001226

PATIENT
  Age: 67 Year
  Sex: Female

DRUGS (1)
  1. REMODULIN [Suspect]
     Indication: PULMONARY HYPERTENSION
     Dosage: SUBCUTANEOUS
     Route: 058

REACTIONS (9)
  - DISEASE PROGRESSION [None]
  - ERYTHEMA [None]
  - INFUSION SITE HAEMORRHAGE [None]
  - INFUSION SITE INFECTION [None]
  - MENTAL DISORDER [None]
  - OEDEMA [None]
  - PAIN [None]
  - PULMONARY HYPERTENSION [None]
  - SCAR [None]
